FAERS Safety Report 14063011 (Version 1)
Quarter: 2017Q4

REPORT INFORMATION
  Report Type: Report from Study
  Country: PK (occurrence: PK)
  Receive Date: 20171009
  Receipt Date: 20171009
  Transmission Date: 20180321
  Serious: Yes (Death)
  Sender: FDA-Public Use
  Company Number: PHHY2017PK147414

PATIENT
  Age: 45 Year
  Sex: Male
  Weight: 56 kg

DRUGS (1)
  1. AFINITOR [Suspect]
     Active Substance: EVEROLIMUS
     Dosage: 5 MG, QD
     Route: 048
     Dates: start: 20170817

REACTIONS (1)
  - Death [Fatal]

NARRATIVE: CASE EVENT DATE: 20170928
